FAERS Safety Report 4731868-7 (Version None)
Quarter: 2005Q2

REPORT INFORMATION
  Report Type: 
  Country: None (occurrence: None)
  Receive Date: 20050429
  Receipt Date: 20050120
  Transmission Date: 20051028
  Serious: No
  Sender: FDA-Public Use
  Company Number: 2005-0007943

PATIENT
  Sex: Male
  Weight: 85.2762 kg

DRUGS (10)
  1. VIREAD [Suspect]
     Indication: HIV INFECTION
     Dosage: 300 MG, 1 IN 1 D, ORAL
     Route: 048
     Dates: start: 20040709, end: 20041215
  2. EMTRIVA [Suspect]
     Indication: HIV INFECTION
     Dosage: 200 MG, 1 IN 1 D, ORAL
     Route: 048
     Dates: start: 20040709
  3. REYATAZ [Concomitant]
  4. NORVIR [Concomitant]
  5. BACTRIM DS [Concomitant]
  6. ZITHROMAX [Concomitant]
  7. DEPAKOTE [Concomitant]
  8. SEROQUEL [Concomitant]
  9. ISONIAZID [Concomitant]
  10. B6 (PYRIDOXINE HYDROCHLORIDE) [Concomitant]

REACTIONS (1)
  - BLOOD CREATININE INCREASED [None]
